FAERS Safety Report 13533410 (Version 4)
Quarter: 2018Q1

REPORT INFORMATION
  Report Type: Report from Study
  Country: US (occurrence: US)
  Receive Date: 20170510
  Receipt Date: 20180326
  Transmission Date: 20180508
  Serious: Yes (Hospitalization)
  Sender: FDA-Public Use
  Company Number: US-JNJFOC-20170508872

PATIENT
  Sex: Female

DRUGS (24)
  1. IMBRUVICA [Suspect]
     Active Substance: IBRUTINIB
     Indication: NON-HODGKIN^S LYMPHOMA
     Dosage: 420 MG, QD
     Route: 048
     Dates: start: 20170330, end: 2017
  2. PEPCID [Concomitant]
     Active Substance: FAMOTIDINE
  3. MEMANTINE. [Concomitant]
     Active Substance: MEMANTINE
  4. NYSTATIN. [Concomitant]
     Active Substance: NYSTATIN
  5. DEXAMETHASONE. [Concomitant]
     Active Substance: DEXAMETHASONE
  6. PROZAC [Concomitant]
     Active Substance: FLUOXETINE HYDROCHLORIDE
  7. SULFAMETHOXAZOLE [Concomitant]
     Active Substance: SULFAMETHOXAZOLE
  8. GABAPENTIN. [Concomitant]
     Active Substance: GABAPENTIN
  9. JANUVIA [Concomitant]
     Active Substance: SITAGLIPTIN PHOSPHATE
  10. NORTRIPTYLINE [Concomitant]
     Active Substance: NORTRIPTYLINE
  11. CYCLOPHOSPHAMIDE. [Concomitant]
     Active Substance: CYCLOPHOSPHAMIDE
  12. ZOFRAN [Concomitant]
     Active Substance: ONDANSETRON HYDROCHLORIDE
  13. GLIPIZIDE. [Concomitant]
     Active Substance: GLIPIZIDE
  14. LOSARTAN. [Concomitant]
     Active Substance: LOSARTAN
  15. LASIX [Concomitant]
     Active Substance: FUROSEMIDE
  16. KCL [Concomitant]
     Active Substance: POTASSIUM CHLORIDE
  17. AMIODARONE [Concomitant]
     Active Substance: AMIODARONE
  18. FOLIC ACID. [Concomitant]
     Active Substance: FOLIC ACID
  19. ASPIRIN. [Concomitant]
     Active Substance: ASPIRIN
  20. TOPROL XL [Concomitant]
     Active Substance: METOPROLOL SUCCINATE
  21. PREDNISONE. [Concomitant]
     Active Substance: PREDNISONE
  22. IMBRUVICA [Suspect]
     Active Substance: IBRUTINIB
     Indication: NON-HODGKIN^S LYMPHOMA
     Dosage: 420 MG, QD
     Route: 048
     Dates: end: 201801
  23. CLOTRIMAZOLE. [Concomitant]
     Active Substance: CLOTRIMAZOLE
  24. FLUCONAZOLE. [Concomitant]
     Active Substance: FLUCONAZOLE

REACTIONS (2)
  - Immune thrombocytopenic purpura [Recovering/Resolving]
  - Warm type haemolytic anaemia [Unknown]

NARRATIVE: CASE EVENT DATE: 2018
